FAERS Safety Report 14311569 (Version 1)
Quarter: 2017Q4

REPORT INFORMATION
  Report Type: Spontaneous
  Country: DE (occurrence: DE)
  Receive Date: 20171221
  Receipt Date: 20171221
  Transmission Date: 20180321
  Serious: Yes (Life-Threatening, Hospitalization)
  Sender: FDA-Public Use
  Company Number: DE-CIPLA LTD.-2017DE23706

PATIENT

DRUGS (8)
  1. FLUOROURACIL. [Suspect]
     Active Substance: FLUOROURACIL
     Indication: COLORECTAL CANCER METASTATIC
     Dosage: 2640 MG, UNK CYCLICAL
     Route: 041
     Dates: start: 20141208, end: 20141208
  2. PANTOPRAZOLE [Concomitant]
     Active Substance: PANTOPRAZOLE
     Indication: PROPHYLAXIS AGAINST GASTROINTESTINAL ULCER
     Dosage: UNK
     Route: 065
  3. IRINOTECAN [Suspect]
     Active Substance: IRINOTECAN
     Indication: COLORECTAL CANCER METASTATIC
     Dosage: 105 MG, UNK CYCLICAL
     Route: 041
     Dates: start: 20141208, end: 20141208
  4. LEUCOVORIN. [Suspect]
     Active Substance: LEUCOVORIN
     Dosage: 273 MG, UNK CYCLICAL
     Route: 041
     Dates: start: 20150202, end: 20150202
  5. IRINOTECAN [Suspect]
     Active Substance: IRINOTECAN
     Dosage: 110 MG, CYCLICAL
     Route: 041
     Dates: start: 20150202, end: 20150202
  6. LEUCOVORIN. [Suspect]
     Active Substance: LEUCOVORIN
     Indication: COLORECTAL CANCER METASTATIC
     Dosage: 262 MG, UNK CYCLICAL
     Route: 041
     Dates: start: 20141208, end: 20141208
  7. FLUOROURACIL. [Suspect]
     Active Substance: FLUOROURACIL
     Dosage: 2753 MG, UNK CYCLICAL
     Route: 041
     Dates: start: 20150202, end: 20150202
  8. AFLIBERCEPT [Suspect]
     Active Substance: AFLIBERCEPT
     Indication: COLORECTAL CANCER METASTATIC
     Dosage: 252 MG, UNK CYCLICAL
     Route: 041
     Dates: start: 20150202, end: 20150202

REACTIONS (3)
  - Acute hepatic failure [Not Recovered/Not Resolved]
  - Dehydration [Recovered/Resolved]
  - Pulmonary embolism [Recovered/Resolved]

NARRATIVE: CASE EVENT DATE: 20150209
